FAERS Safety Report 7393153-7 (Version None)
Quarter: 2011Q2

REPORT INFORMATION
  Report Type: 
  Country: None (occurrence: None)
  Receive Date: 20110404
  Receipt Date: 20110321
  Transmission Date: 20111010
  Serious: Yes (Life-Threatening)
  Sender: FDA-Public Use
  Company Number: GB-MYLANLABS-2011S1005903

PATIENT
  Age: 54 Year
  Sex: Female

DRUGS (6)
  1. METHADONE [Suspect]
     Indication: PAIN
     Route: 048
     Dates: start: 20101120
  2. FLUOXETINE [Concomitant]
     Indication: PRODUCT USED FOR UNKNOWN INDICATION
     Route: 048
  3. SYMBICORT [Concomitant]
     Indication: CHRONIC OBSTRUCTIVE PULMONARY DISEASE
     Route: 055
  4. LOPERAMIDE [Concomitant]
     Indication: DIARRHOEA
     Route: 048
  5. SPIRIVA [Concomitant]
     Indication: CHRONIC OBSTRUCTIVE PULMONARY DISEASE
     Route: 055
  6. FLUCONAZOLE [Suspect]
     Indication: CANDIDIASIS
     Route: 048
     Dates: start: 20110222, end: 20110225

REACTIONS (2)
  - RESPIRATORY FAILURE [None]
  - RESPIRATORY DEPRESSION [None]
